FAERS Safety Report 8257680-2 (Version None)
Quarter: 2012Q2

REPORT INFORMATION
  Report Type: 
  Country: None (occurrence: None)
  Receive Date: 20120403
  Receipt Date: 20120326
  Transmission Date: 20120825
  Serious: No
  Sender: FDA-Public Use
  Company Number: US-B.I. PHARMACEUTICALS,INC./RIDGEFIELD-2012-BP-05698BP

PATIENT
  Age: 69 Year
  Sex: Female

DRUGS (1)
  1. ZANTAC 150 [Suspect]
     Indication: GASTRITIS EROSIVE
     Dosage: 300 MG
     Route: 048
     Dates: start: 20120319

REACTIONS (2)
  - CONSTIPATION [None]
  - SOMNOLENCE [None]
